FAERS Safety Report 13367171 (Version 1)
Quarter: 2017Q1

REPORT INFORMATION
  Report Type: Spontaneous
  Country: BR (occurrence: BR)
  Receive Date: 20170324
  Receipt Date: 20170324
  Transmission Date: 20170429
  Serious: Yes (Other)
  Sender: FDA-Public Use
  Company Number: BR-ELI_LILLY_AND_COMPANY-BR201703005321

PATIENT
  Sex: Female

DRUGS (7)
  1. DEPURA [Concomitant]
     Active Substance: CHOLECALCIFEROL
     Indication: VITAMIN D DEFICIENCY
  2. NEUTROFER [Concomitant]
     Active Substance: FERROUS BISGLYCINATE
     Indication: ANAEMIA
     Dosage: UNK, UNKNOWN
     Route: 064
  3. HUMALOG [Suspect]
     Active Substance: INSULIN LISPRO
     Indication: GESTATIONAL DIABETES
     Dosage: 3 IU, EACH MORNING
     Route: 064
  4. DEPURA [Concomitant]
     Active Substance: CHOLECALCIFEROL
     Indication: ANAEMIA
     Dosage: UNK, UNKNOWN
     Route: 064
  5. NEUTROFER [Concomitant]
     Active Substance: FERROUS BISGLYCINATE
     Indication: VITAMIN D DEFICIENCY
  6. HUMULIN N [Suspect]
     Active Substance: INSULIN HUMAN
     Indication: GESTATIONAL DIABETES
     Dosage: 16 IU, QD AFTER LUNCH
     Route: 064
  7. HUMALOG [Suspect]
     Active Substance: INSULIN LISPRO
     Dosage: 3 IU, EACH EVENING
     Route: 064

REACTIONS (4)
  - Cardiac murmur [Recovered/Resolved]
  - Hypersensitivity [Unknown]
  - Large for dates baby [Unknown]
  - Foetal exposure during pregnancy [Recovered/Resolved]
